FAERS Safety Report 6001492-7 (Version None)
Quarter: 2008Q4

REPORT INFORMATION
  Report Type: 
  Country: None (occurrence: None)
  Receive Date: 20081215
  Receipt Date: 20071106
  Transmission Date: 20090506
  Serious: No
  Sender: FDA-Public Use
  Company Number: US-AMGEN-KDL251457

PATIENT
  Sex: Female

DRUGS (4)
  1. ENBREL [Suspect]
     Indication: RHEUMATOID ARTHRITIS
     Route: 058
     Dates: start: 20071026
  2. ENBREL [Suspect]
     Indication: DRUG USE FOR UNKNOWN INDICATION
  3. PLAQUENIL [Concomitant]
     Dates: start: 20050101
  4. METHOTREXATE [Concomitant]
     Dates: start: 20020101

REACTIONS (2)
  - INJECTION SITE NODULE [None]
  - INJECTION SITE PAIN [None]
